FAERS Safety Report 12952034 (Version 1)
Quarter: 2016Q4

REPORT INFORMATION
  Report Type: Spontaneous
  Country: ES (occurrence: ES)
  Receive Date: 20161117
  Receipt Date: 20161117
  Transmission Date: 20170207
  Serious: Yes (Death)
  Sender: FDA-Public Use
  Company Number: ES-CELGENEUS-ESP-2016112176

PATIENT
  Age: 69 Year
  Sex: Female

DRUGS (22)
  1. METFORMIN [Concomitant]
     Active Substance: METFORMIN HYDROCHLORIDE
     Indication: PRODUCT USED FOR UNKNOWN INDICATION
     Route: 065
  2. GEMCITABINE [Suspect]
     Active Substance: GEMCITABINE\GEMCITABINE HYDROCHLORIDE
     Indication: ADENOCARCINOMA PANCREAS
     Route: 065
     Dates: start: 201410
  3. FENTANYL. [Concomitant]
     Active Substance: FENTANYL
     Route: 062
  4. PREGABALIN. [Concomitant]
     Active Substance: PREGABALIN
     Indication: ADENOCARCINOMA PANCREAS
     Dosage: 20 MILLIGRAM
     Route: 065
  5. FENTANYL. [Concomitant]
     Active Substance: FENTANYL
     Route: 062
  6. FENTANYL. [Concomitant]
     Active Substance: FENTANYL
     Dosage: 8 MILLIGRAM
     Route: 065
  7. METOCLOPRAMIDE. [Concomitant]
     Active Substance: METOCLOPRAMIDE
     Indication: ADENOCARCINOMA PANCREAS
     Dosage: 10 MILLIGRAM
     Route: 065
  8. XELOX [Concomitant]
     Active Substance: CAPECITABINE\OXALIPLATIN
     Indication: ADENOCARCINOMA PANCREAS
     Route: 065
  9. NEXIUM [Concomitant]
     Active Substance: ESOMEPRAZOLE MAGNESIUM
     Indication: PRODUCT USED FOR UNKNOWN INDICATION
     Route: 065
  10. ANAFRANIL [Concomitant]
     Active Substance: CLOMIPRAMINE HYDROCHLORIDE
     Indication: PRODUCT USED FOR UNKNOWN INDICATION
     Route: 065
  11. METAMIZOLE [Concomitant]
     Active Substance: METAMIZOLE
     Indication: PRODUCT USED FOR UNKNOWN INDICATION
     Route: 065
  12. CARVEDILOL. [Concomitant]
     Active Substance: CARVEDILOL
     Indication: PRODUCT USED FOR UNKNOWN INDICATION
     Route: 065
  13. BECLOMETHASONE [Concomitant]
     Active Substance: BECLOMETHASONE
     Indication: PRODUCT USED FOR UNKNOWN INDICATION
     Route: 065
  14. ABRAXANE [Suspect]
     Active Substance: PACLITAXEL
     Indication: ADENOCARCINOMA PANCREAS
     Route: 041
     Dates: start: 201410
  15. GEMCITABINE [Suspect]
     Active Substance: GEMCITABINE\GEMCITABINE HYDROCHLORIDE
     Route: 065
  16. FENTANYL. [Concomitant]
     Active Substance: FENTANYL
     Indication: ADENOCARCINOMA PANCREAS
     Dosage: 3000 MILLIGRAM
     Route: 062
  17. FENTANYL. [Concomitant]
     Active Substance: FENTANYL
     Dosage: 150 MILLIGRAM
     Route: 062
  18. ABRAXANE [Suspect]
     Active Substance: PACLITAXEL
     Route: 041
  19. ZOLPIDEM [Concomitant]
     Active Substance: ZOLPIDEM\ZOLPIDEM TARTRATE
     Indication: PRODUCT USED FOR UNKNOWN INDICATION
     Route: 065
  20. FENTANYL. [Concomitant]
     Active Substance: FENTANYL
     Route: 065
  21. DEXAMETHASONE. [Concomitant]
     Active Substance: DEXAMETHASONE
     Indication: ADENOCARCINOMA PANCREAS
     Route: 065
  22. IRINOTECAN [Concomitant]
     Active Substance: IRINOTECAN
     Indication: ADENOCARCINOMA PANCREAS
     Route: 065

REACTIONS (6)
  - Neutropenia [Recovered/Resolved]
  - Vomiting [Not Recovered/Not Resolved]
  - Mucosal inflammation [Not Recovered/Not Resolved]
  - Anaemia [Not Recovered/Not Resolved]
  - Death [Fatal]
  - Nausea [Recovered/Resolved]

NARRATIVE: CASE EVENT DATE: 20160429
